FAERS Safety Report 8060739-6 (Version None)
Quarter: 2012Q1

REPORT INFORMATION
  Report Type: 
  Country: None (occurrence: None)
  Receive Date: 20120120
  Receipt Date: 20120117
  Transmission Date: 20120608
  Serious: Yes (Other)
  Sender: FDA-Public Use
  Company Number: VE-ABBOTT-12P-178-0894665-00

PATIENT
  Sex: Female

DRUGS (1)
  1. HUMIRA [Suspect]
     Indication: RHEUMATOID ARTHRITIS
     Dosage: 40MG/0.8ML EVERY OTHER WEEK
     Dates: start: 20100125, end: 20111110

REACTIONS (1)
  - TUBERCULIN TEST POSITIVE [None]
